FAERS Safety Report 18158964 (Version 2)
Quarter: 2021Q1

REPORT INFORMATION
  Report Type: Spontaneous
  Country: DE (occurrence: DE)
  Receive Date: 20200817
  Receipt Date: 20210305
  Transmission Date: 20210419
  Serious: Yes (Death, Other)
  Sender: FDA-Public Use
  Company Number: DE-SUN PHARMACEUTICAL INDUSTRIES LTD-2020RR-258046

PATIENT
  Age: 17 Year
  Sex: Male
  Weight: 105 kg

DRUGS (4)
  1. TILIDINE [Interacting]
     Active Substance: TILIDINE
     Indication: PRODUCT USED FOR UNKNOWN INDICATION
     Dosage: UNK
     Route: 065
  2. VALSARTAN. [Suspect]
     Active Substance: VALSARTAN
     Indication: PRODUCT USED FOR UNKNOWN INDICATION
     Dosage: UNK
     Route: 065
  3. CITALOPRAM [Interacting]
     Active Substance: CITALOPRAM HYDROBROMIDE
     Indication: PRODUCT USED FOR UNKNOWN INDICATION
     Dosage: ()
     Route: 065
  4. FENTANYL. [Interacting]
     Active Substance: FENTANYL
     Indication: PRODUCT USED FOR UNKNOWN INDICATION
     Dosage: THREE PATCHES OF 100 UG/H EACH ? TOTAL: 300 UG/H ()
     Route: 062

REACTIONS (8)
  - Prescription drug used without a prescription [Fatal]
  - Pulmonary oedema [Unknown]
  - Brain oedema [Unknown]
  - Drug intolerance [Unknown]
  - Intentional product misuse [Fatal]
  - Drug interaction [Fatal]
  - Toxicity to various agents [Fatal]
  - Urinary retention [Unknown]
